FAERS Safety Report 24286035 (Version 1)
Quarter: 2024Q3

REPORT INFORMATION
  Report Type: Spontaneous
  Country: JP (occurrence: JP)
  Receive Date: 20240905
  Receipt Date: 20240905
  Transmission Date: 20241017
  Serious: Yes (Other)
  Sender: SANOFI AVENTIS
  Company Number: JP-ASTELLAS-2024-AER-002022

PATIENT
  Sex: Male

DRUGS (7)
  1. ZOLPIDEM TARTRATE [Suspect]
     Active Substance: ZOLPIDEM TARTRATE
     Indication: Product used for unknown indication
     Dosage: 10 MG (10.000MG)
     Route: 048
  2. TADALAFIL [Suspect]
     Active Substance: TADALAFIL
     Indication: Prostatic specific antigen decreased
     Dosage: UNK
     Route: 048
     Dates: end: 20240817
  3. TRIMEBUTINE [Concomitant]
     Active Substance: TRIMEBUTINE
     Indication: Product used for unknown indication
     Dosage: UNK
     Route: 048
  4. MIYA-BM [Concomitant]
     Active Substance: CLOSTRIDIUM BUTYRICUM SPORES STRAIN M-55
     Indication: Product used for unknown indication
     Dosage: UNK
     Route: 048
  5. TRIMEBUTINE MALEATE [Concomitant]
     Active Substance: TRIMEBUTINE MALEATE
     Indication: Product used for unknown indication
     Dosage: UNK
     Route: 065
  6. OPALMON [Concomitant]
     Active Substance: LIMAPROST
     Indication: Spinal disorder
     Dosage: UNK
     Route: 048
     Dates: start: 2023
  7. LYRICA [Concomitant]
     Active Substance: PREGABALIN
     Indication: Spinal disorder
     Dosage: UNK
     Route: 048

REACTIONS (6)
  - Sudden hearing loss [Recovered/Resolved]
  - Prostatic specific antigen decreased [Unknown]
  - Spinal disorder [Unknown]
  - Muscle disorder [Recovered/Resolved]
  - Rash [Recovered/Resolved]
  - Drug interaction [Unknown]

NARRATIVE: CASE EVENT DATE: 20230101
